FAERS Safety Report 26001285 (Version 1)
Quarter: 2025Q4

REPORT INFORMATION
  Report Type: Spontaneous
  Country: GB (occurrence: GB)
  Receive Date: 20251105
  Receipt Date: 20251105
  Transmission Date: 20260117
  Serious: Yes (Other)
  Sender: MYLAN
  Company Number: GB-MHRA-TPP973892C10212950YC1761836425050

PATIENT
  Age: 62 Year
  Sex: Female
  Weight: 69 kg

DRUGS (20)
  1. ATORVASTATIN [Suspect]
     Active Substance: ATORVASTATIN
     Indication: Ill-defined disorder
     Dosage: 10 MILLIGRAM
     Dates: start: 20250517, end: 20251010
  2. ATORVASTATIN [Suspect]
     Active Substance: ATORVASTATIN
     Dosage: 10 MILLIGRAM
     Route: 048
     Dates: start: 20250517, end: 20251010
  3. ATORVASTATIN [Suspect]
     Active Substance: ATORVASTATIN
     Dosage: 10 MILLIGRAM
     Route: 048
     Dates: start: 20250517, end: 20251010
  4. ATORVASTATIN [Suspect]
     Active Substance: ATORVASTATIN
     Dosage: 10 MILLIGRAM
     Dates: start: 20250517, end: 20251010
  5. MOUNJARO [Concomitant]
     Active Substance: TIRZEPATIDE
     Indication: Ill-defined disorder
     Dosage: UNK
  6. MOUNJARO [Concomitant]
     Active Substance: TIRZEPATIDE
     Dosage: UNK
     Route: 065
  7. MOUNJARO [Concomitant]
     Active Substance: TIRZEPATIDE
     Dosage: UNK
     Route: 065
  8. MOUNJARO [Concomitant]
     Active Substance: TIRZEPATIDE
     Dosage: UNK
  9. ROSUVASTATIN [Concomitant]
     Active Substance: ROSUVASTATIN
     Indication: Ill-defined disorder
     Dosage: 1 DOSAGE FORM, QD (TAKE ONE DAILY)
     Dates: start: 20251010
  10. ROSUVASTATIN [Concomitant]
     Active Substance: ROSUVASTATIN
     Dosage: 1 DOSAGE FORM, QD (TAKE ONE DAILY)
     Route: 065
     Dates: start: 20251010
  11. ROSUVASTATIN [Concomitant]
     Active Substance: ROSUVASTATIN
     Dosage: 1 DOSAGE FORM, QD (TAKE ONE DAILY)
     Route: 065
     Dates: start: 20251010
  12. ROSUVASTATIN [Concomitant]
     Active Substance: ROSUVASTATIN
     Dosage: 1 DOSAGE FORM, QD (TAKE ONE DAILY)
     Dates: start: 20251010
  13. EZETIMIBE [Concomitant]
     Active Substance: EZETIMIBE
     Indication: Ill-defined disorder
     Dosage: 1 DOSAGE FORM, QD (ONE TO BE TAKEN DAILY)
     Dates: start: 20251030
  14. EZETIMIBE [Concomitant]
     Active Substance: EZETIMIBE
     Dosage: 1 DOSAGE FORM, QD (ONE TO BE TAKEN DAILY)
     Route: 065
     Dates: start: 20251030
  15. EZETIMIBE [Concomitant]
     Active Substance: EZETIMIBE
     Dosage: 1 DOSAGE FORM, QD (ONE TO BE TAKEN DAILY)
     Route: 065
     Dates: start: 20251030
  16. EZETIMIBE [Concomitant]
     Active Substance: EZETIMIBE
     Dosage: 1 DOSAGE FORM, QD (ONE TO BE TAKEN DAILY)
     Dates: start: 20251030
  17. FEXOFENADINE [Concomitant]
     Active Substance: FEXOFENADINE HYDROCHLORIDE
     Indication: Ill-defined disorder
     Dosage: UNK (TAKE TWO TABLETS IN THE MORNING AND ONE TABLET ...)
  18. FEXOFENADINE [Concomitant]
     Active Substance: FEXOFENADINE HYDROCHLORIDE
     Dosage: UNK (TAKE TWO TABLETS IN THE MORNING AND ONE TABLET ...)
     Route: 065
  19. FEXOFENADINE [Concomitant]
     Active Substance: FEXOFENADINE HYDROCHLORIDE
     Dosage: UNK (TAKE TWO TABLETS IN THE MORNING AND ONE TABLET ...)
     Route: 065
  20. FEXOFENADINE [Concomitant]
     Active Substance: FEXOFENADINE HYDROCHLORIDE
     Dosage: UNK (TAKE TWO TABLETS IN THE MORNING AND ONE TABLET ...)

REACTIONS (3)
  - Angioedema [Recovered/Resolved]
  - Eye swelling [Unknown]
  - Lip swelling [Unknown]

NARRATIVE: CASE EVENT DATE: 20250517
